FAERS Safety Report 9787001 (Version 1)
Quarter: 2013Q4

REPORT INFORMATION
  Report Type: Spontaneous
  Country: GB (occurrence: GB)
  Receive Date: 20131227
  Receipt Date: 20131227
  Transmission Date: 20140711
  Serious: Yes (Other)
  Sender: FDA-Public Use
  Company Number: PHHY2013GB149667

PATIENT
  Age: 54 Year
  Sex: Female

DRUGS (2)
  1. PROPRANOLOL [Suspect]
     Indication: PORTAL HYPERTENSION
     Dosage: 20 MG, BID
     Route: 048
     Dates: start: 201310
  2. PROPRANOLOL ACTAVIS [Suspect]
     Indication: PORTAL HYPERTENSION
     Dosage: 10 MG, BID
     Route: 048

REACTIONS (2)
  - Somnolence [Unknown]
  - Vision blurred [Not Recovered/Not Resolved]
